FAERS Safety Report 9049954 (Version 2)
Quarter: 2013Q1

REPORT INFORMATION
  Report Type: Spontaneous
  Country: FR (occurrence: FR)
  Receive Date: 20130205
  Receipt Date: 20130322
  Transmission Date: 20140127
  Serious: Yes (Disabling, Other)
  Sender: FDA-Public Use
  Company Number: FR-ROCHE-1187719

PATIENT
  Age: 8 Year
  Sex: Female
  Weight: 31 kg

DRUGS (7)
  1. XOLAIR [Suspect]
     Indication: ASTHMA
     Route: 058
     Dates: start: 201212
  2. SERETIDE [Concomitant]
  3. AERIUS [Concomitant]
  4. SINGULAIR [Concomitant]
  5. OGAST [Concomitant]
  6. VENTOLINE [Concomitant]
  7. SOLUPRED (FRANCE) [Concomitant]

REACTIONS (1)
  - Headache [Recovering/Resolving]
